FAERS Safety Report 9228900 (Version 1)
Quarter: 2013Q2

REPORT INFORMATION
  Report Type: Spontaneous
  Country: BR (occurrence: BR)
  Receive Date: 20130412
  Receipt Date: 20130412
  Transmission Date: 20140414
  Serious: Yes (Hospitalization, Other)
  Sender: FDA-Public Use
  Company Number: BR-BRISTOL-MYERS SQUIBB COMPANY-18759324

PATIENT
  Age: 80 Year
  Sex: Female

DRUGS (7)
  1. APROZIDE [Suspect]
     Indication: BLOOD PRESSURE MANAGEMENT
     Dosage: 1DF:150/12.5MG/TAB
     Route: 048
     Dates: start: 2002
  2. VENALOT [Concomitant]
     Indication: VARICOSE VEIN
     Route: 048
  3. OMEPRAZOLE [Concomitant]
     Indication: ULCER
  4. VYTORIN [Concomitant]
     Indication: BLOOD TRIGLYCERIDES INCREASED
  5. MONOCORDIL [Concomitant]
     Indication: CARDIAC DISORDER
  6. AAS [Concomitant]
     Indication: COAGULOPATHY
  7. AAS [Concomitant]
     Indication: PROPHYLAXIS

REACTIONS (5)
  - Erysipelas [Recovered/Resolved]
  - Psoriasis [Unknown]
  - Skin infection [Unknown]
  - Wound [Recovered/Resolved]
  - Nervousness [Unknown]
